FAERS Safety Report 5720428-7 (Version None)
Quarter: 2008Q2

REPORT INFORMATION
  Report Type: 
  Country: None (occurrence: None)
  Receive Date: 20080423
  Receipt Date: 20070509
  Transmission Date: 20081010
  Serious: Yes (Life-Threatening, Hospitalization, Other)
  Sender: FDA-Public Use
  Company Number: 240918

PATIENT
  Age: 62 Year
  Sex: Female
  Weight: 65.5 kg

DRUGS (7)
  1. AVASTIN [Suspect]
     Indication: GLIOBLASTOMA
     Dosage: 600 MG, INTRAVENOUS
     Route: 042
  2. IRINOTECAN HCL [Concomitant]
  3. SYNTHRODI (LEVOTHYROXINE SODIUM) [Concomitant]
  4. WELLBUTRIN XL [Concomitant]
  5. DEXAMETHASONE TAB [Concomitant]
  6. NEXIUM [Concomitant]
  7. MELATONIN (MELATONIN) [Concomitant]

REACTIONS (1)
  - PULMONARY EMBOLISM [None]
